FAERS Safety Report 4850111-1 (Version None)
Quarter: 2005Q4

REPORT INFORMATION
  Report Type: 
  Country: None (occurrence: None)
  Receive Date: 20051123
  Receipt Date: 20041006
  Transmission Date: 20060501
  Serious: Yes (Other)
  Sender: FDA-Public Use
  Company Number: 2004076075

PATIENT
  Age: 65 Year
  Sex: Male

DRUGS (1)
  1. LIPITOR [Suspect]
     Indication: ILL-DEFINED DISORDER

REACTIONS (6)
  - ERYTHEMA [None]
  - ILL-DEFINED DISORDER [None]
  - SKIN DISCOMFORT [None]
  - SKIN DISORDER [None]
  - SKIN EXFOLIATION [None]
  - TOXIC EPIDERMAL NECROLYSIS [None]
